FAERS Safety Report 23468761 (Version 1)
Quarter: 2024Q1

REPORT INFORMATION
  Report Type: Spontaneous
  Country: CN (occurrence: None)
  Receive Date: 20240202
  Receipt Date: 20240202
  Transmission Date: 20240409
  Serious: Yes (Death, Life-Threatening)
  Sender: FDA-Public Use
  Company Number: CN-ROCHE-3501043

PATIENT
  Age: 58 Year
  Sex: Male

DRUGS (2)
  1. TECENTRIQ [Suspect]
     Active Substance: ATEZOLIZUMAB
     Indication: Hepatic cancer
     Route: 065
     Dates: start: 20231220
  2. AVASTIN [Suspect]
     Active Substance: BEVACIZUMAB
     Indication: Hepatic cancer
     Route: 065
     Dates: start: 20231220

REACTIONS (2)
  - Upper gastrointestinal haemorrhage [Unknown]
  - Shock haemorrhagic [Fatal]

NARRATIVE: CASE EVENT DATE: 20231221
